FAERS Safety Report 16715623 (Version 1)
Quarter: 2019Q3

REPORT INFORMATION
  Report Type: Spontaneous
  Country: FR (occurrence: FR)
  Receive Date: 20190819
  Receipt Date: 20190819
  Transmission Date: 20191005
  Serious: Yes (Other)
  Sender: FDA-Public Use
  Company Number: FR-009507513-1908FRA005588

PATIENT
  Age: 77 Year
  Sex: Female

DRUGS (1)
  1. KEYTRUDA [Suspect]
     Active Substance: PEMBROLIZUMAB
     Indication: TRANSITIONAL CELL CARCINOMA
     Dosage: 1 DOSAGE FORM, Q3W
     Route: 042
     Dates: start: 201802, end: 201904

REACTIONS (2)
  - Autoimmune thyroiditis [Recovered/Resolved]
  - Alopecia scarring [Not Recovered/Not Resolved]

NARRATIVE: CASE EVENT DATE: 201804
